FAERS Safety Report 25086930 (Version 3)
Quarter: 2025Q2

REPORT INFORMATION
  Report Type: Spontaneous
  Country: ES (occurrence: ES)
  Receive Date: 20250318
  Receipt Date: 20250513
  Transmission Date: 20250716
  Serious: No
  Sender: BEIGENE
  Company Number: ES-BEIGENE-BGN-2025-004151

PATIENT
  Age: 80 Year

DRUGS (1)
  1. BRUKINSA [Suspect]
     Active Substance: ZANUBRUTINIB
     Indication: Product used for unknown indication

REACTIONS (1)
  - Dysphagia [Unknown]
